FAERS Safety Report 18119147 (Version 3)
Quarter: 2021Q1

REPORT INFORMATION
  Report Type: Report from Study
  Country: US (occurrence: US)
  Receive Date: 20200806
  Receipt Date: 20210105
  Transmission Date: 20210419
  Serious: No
  Sender: FDA-Public Use
  Company Number: NVSC2020US217653

PATIENT
  Age: 60 Year
  Sex: Female

DRUGS (2)
  1. MAYZENT [Suspect]
     Active Substance: SIPONIMOD
     Dosage: 2 MG/KG, QD
     Route: 048
     Dates: start: 20200515, end: 20201223
  2. MAYZENT [Suspect]
     Active Substance: SIPONIMOD
     Indication: MULTIPLE SCLEROSIS
     Dosage: 2 MG, QD
     Route: 048

REACTIONS (8)
  - Erythema [Recovered/Resolved]
  - Palpitations [Recovered/Resolved]
  - Vertigo [Recovered/Resolved]
  - Product availability issue [Unknown]
  - Treatment failure [Unknown]
  - Product complaint [Unknown]
  - Flushing [Recovered/Resolved]
  - Fatigue [Recovered/Resolved]

NARRATIVE: CASE EVENT DATE: 20200528
